FAERS Safety Report 16240622 (Version 1)
Quarter: 2019Q2

REPORT INFORMATION
  Report Type: Spontaneous
  Country: US (occurrence: UA)
  Receive Date: 20190425
  Receipt Date: 20190425
  Transmission Date: 20190711
  Serious: Yes (Other)
  Sender: FDA-Public Use
  Company Number: PHHY2019UA093342

PATIENT
  Age: 3 Year
  Sex: Female

DRUGS (5)
  1. RIFAMPICIN [Suspect]
     Active Substance: RIFAMPIN
     Indication: TUBERCULOSIS
     Route: 065
  2. ETHIONAMIDE [Suspect]
     Active Substance: ETHIONAMIDE
     Indication: TUBERCULOSIS
     Route: 065
  3. STREPTOMYCIN [Suspect]
     Active Substance: STREPTOMYCIN\STREPTOMYCIN SULFATE
     Indication: TUBERCULOSIS
     Route: 065
  4. KANAMYCIN [Suspect]
     Active Substance: KANAMYCIN\KANAMYCIN A SULFATE
     Indication: TUBERCULOSIS
     Route: 065
  5. ISONIAZID. [Suspect]
     Active Substance: ISONIAZID
     Indication: TUBERCULOSIS
     Route: 065

REACTIONS (2)
  - Tuberculosis [Unknown]
  - Hepatotoxicity [Unknown]
